FAERS Safety Report 26032121 (Version 2)
Quarter: 2025Q4

REPORT INFORMATION
  Report Type: Spontaneous
  Country: EU (occurrence: EU)
  Receive Date: 20251112
  Receipt Date: 20251127
  Transmission Date: 20260118
  Serious: Yes (Other)
  Sender: AUROBINDO
  Company Number: EU-MINISAL02-1065061

PATIENT
  Age: 76 Year
  Sex: Male
  Weight: 60 kg

DRUGS (14)
  1. CARBOPLATIN [Suspect]
     Active Substance: CARBOPLATIN
     Indication: Lung carcinoma cell type unspecified stage IV
     Dosage: 500 MILLIGRAM, EVERY 21 DAYS (CARBOPLATINO 500 MG EV OGNI 21 GIORNI PER 4 CICLI)
     Dates: start: 20250616, end: 20250819
  2. CARBOPLATIN [Suspect]
     Active Substance: CARBOPLATIN
     Dosage: 500 MILLIGRAM, EVERY 21 DAYS (CA
     Dates: start: 20250616, end: 20250819
  3. CARBOPLATIN [Suspect]
     Active Substance: CARBOPLATIN
     Dosage: 500 MILLIGRAM, EVERY 21 DAYS (CARBOPLATINO 500 MG EV OGNI 21 GIORNI PER 4 CICLI)
     Dates: start: 20250616, end: 20250819
  4. PACLITAXEL [Suspect]
     Active Substance: PACLITAXEL
     Indication: Product used for unknown indication
     Dosage: 175 MILLIGRAM/SQ. METER, EVERY 21 DAYS
     Dates: start: 20250616, end: 20250819
  5. KEYTRUDA [Suspect]
     Active Substance: PEMBROLIZUMAB
     Indication: Lung squamous cell carcinoma metastatic
     Dosage: 200 MILLIGRAM, EVERY 21 DAYS (KEYTRUDA (PEMBROLIZUMAB) 200 MG ENDOVENA OGNI 21 GIORNI PER 4 CICLI)
     Dates: start: 20250616, end: 20250819
  6. KEYTRUDA [Suspect]
     Active Substance: PEMBROLIZUMAB
     Dosage: 200 MILLIGRAM, EVERY 21 DAYS (KEYTRUDA (PEMBROLIZUMAB) 200 MG ENDOVENA OGNI 21 GIORNI PER 4 CICLI)
     Dates: start: 20250616, end: 20250819
  7. KEYTRUDA [Suspect]
     Active Substance: PEMBROLIZUMAB
     Dosage: 200 MILLIGRAM, EVERY 21 DAYS (KEYTRUDA (PEMBROLIZUMAB) 200 MG ENDOVENA OGNI 21 GIORNI PER 4 CICLI)
     Dates: start: 20250616, end: 20250819
  8. KEYTRUDA [Suspect]
     Active Substance: PEMBROLIZUMAB
     Dosage: 200 MILLIGRAM, EVERY 21 DAYS (KEYTRUDA (PEMBROLIZUMAB) 200 MG ENDOVENA OGNI 21 GIORNI PER 4 CICLI)
     Dates: start: 20250616, end: 20250819
  9. KEYTRUDA [Suspect]
     Active Substance: PEMBROLIZUMAB
     Dosage: 200 MILLIGRAM, EVERY 21 DAYS (KEYTRUDA (PEMBROLIZUMAB) 200 MG ENDOVENA OGNI 21 GIORNI PER 4 CICLI)
     Dates: start: 20250616, end: 20250819
  10. PANTOPRAZOLE SODIUM [Concomitant]
     Active Substance: PANTOPRAZOLE SODIUM
     Indication: Product used for unknown indication
     Dosage: 40 MILLIGRAM, ONCE A DAY
  11. ACETAMINOPHEN\OXYCODONE HYDROCHLORIDE [Concomitant]
     Active Substance: ACETAMINOPHEN\OXYCODONE HYDROCHLORIDE
     Indication: Product used for unknown indication
     Dosage: 325 MILLIGRAM, ONCE A DAY (DEPALGOS 5+ 325 MILLIGRAMMI 1 COMPRESSA AL GIORNO IN CASO DI DOLORE)
     Route: 065
  12. PREDNISONE [Concomitant]
     Active Substance: PREDNISONE
     Indication: Product used for unknown indication
     Dosage: 12.5 MILLIGRAM, ONCE A DAY (ASSUME MEZZA COMPRESSA DI DELTACORTENE 25 MGR TUTTI I GIORNI ALLE ORE 8. RIDUCE PROGRESSIVAMENTE IL DOSAGGIO DA MEZZA COMPRESSA A 1/4 A PARTIRE DAL 7 LUGLIO E LA INTERROMPE COMPLETAMENTE IL 28 LUGLIO.)
     Dates: start: 20250313, end: 20250728
  13. NALOXONE HYDROCHLORIDE\OXYCODONE HYDROCHLORIDE [Concomitant]
     Active Substance: NALOXONE HYDROCHLORIDE\OXYCODONE HYDROCHLORIDE
     Indication: Product used for unknown indication
     Dosage: 10 MILLIGRAM, TWO TIMES A DAY (TARGIN 10+5 MG 1 COMPRESSA ORE 8:00, 1 COMPRESSA ORE 20:00)
     Route: 065
  14. MOVICOL [Concomitant]
     Active Substance: POLYETHYLENE GLYCOL 3350\POTASSIUM CHLORIDE\SODIUM BICARBONATE\SODIUM CHLORIDE
     Indication: Product used for unknown indication
     Dosage: UNK
     Route: 065

REACTIONS (1)
  - Interstitial lung disease [Recovering/Resolving]

NARRATIVE: CASE EVENT DATE: 20251006
